FAERS Safety Report 9216568 (Version 3)
Quarter: 2013Q2

REPORT INFORMATION
  Report Type: Spontaneous
  Country: US (occurrence: US)
  Receive Date: 20130408
  Receipt Date: 20130501
  Transmission Date: 20140414
  Serious: Yes (Hospitalization, Other)
  Sender: FDA-Public Use
  Company Number: US-ELI_LILLY_AND_COMPANY-US201304000627

PATIENT
  Age: 55 Year
  Sex: Female

DRUGS (3)
  1. HUMALOG 25% LISPRO, 75% NPL [Suspect]
     Indication: TYPE 2 DIABETES MELLITUS
     Dosage: 15 U, BID
     Dates: start: 2010
  2. HUMALOG 25% LISPRO, 75% NPL [Concomitant]
     Dosage: UNK, UNKNOWN
  3. LEVEMIR [Concomitant]
     Indication: DIABETES MELLITUS
     Dosage: 30 U, QD

REACTIONS (5)
  - Toxic nodular goitre [Unknown]
  - Ovarian mass [Not Recovered/Not Resolved]
  - Hyperthyroidism [Unknown]
  - Pruritus [Unknown]
  - Blood glucose abnormal [Unknown]
